FAERS Safety Report 18735381 (Version 1)
Quarter: 2021Q1

REPORT INFORMATION
  Report Type: Spontaneous
  Country: US (occurrence: US)
  Receive Date: 20210113
  Receipt Date: 20210113
  Transmission Date: 20210419
  Serious: No
  Sender: FDA-Public Use
  Company Number: None

PATIENT
  Sex: Female

DRUGS (1)
  1. CAPECITABINE. [Suspect]
     Active Substance: CAPECITABINE
     Indication: NEOPLASM MALIGNANT
     Route: 048

REACTIONS (5)
  - Erythema [None]
  - Palmar-plantar erythrodysaesthesia syndrome [None]
  - Skin discolouration [None]
  - Pain in extremity [None]
  - Peripheral swelling [None]
